FAERS Safety Report 8399210-0 (Version None)
Quarter: 2012Q2

REPORT INFORMATION
  Report Type: 
  Country: None (occurrence: None)
  Receive Date: 20120531
  Receipt Date: 20120524
  Transmission Date: 20120825
  Serious: Yes (Hospitalization)
  Sender: FDA-Public Use
  Company Number: US-GLAXOSMITHKLINE-A0940271A

PATIENT
  Age: 54 Year
  Sex: Female
  Weight: 100.9 kg

DRUGS (7)
  1. AVANDIA [Suspect]
     Indication: DIABETES MELLITUS
     Dosage: 4MG TWICE PER DAY
     Route: 048
     Dates: start: 20010801, end: 20070423
  2. ALLEGRA [Concomitant]
  3. DIOVAN [Concomitant]
  4. LOPRESSOR [Concomitant]
  5. TRICOR [Concomitant]
  6. ZETIA [Concomitant]
  7. GLUCOVANCE [Concomitant]

REACTIONS (5)
  - MYOCARDIAL INFARCTION [None]
  - CORONARY ARTERY DISEASE [None]
  - AMNESIA [None]
  - BRONCHITIS [None]
  - CARDIAC FAILURE CONGESTIVE [None]
